FAERS Safety Report 6676637-6 (Version None)
Quarter: 2010Q2

REPORT INFORMATION
  Report Type: 
  Country: None (occurrence: None)
  Receive Date: 20100409
  Receipt Date: 20100409
  Transmission Date: 20101027
  Serious: Yes (Other)
  Sender: FDA-Public Use
  Company Number: None

PATIENT
  Sex: Female
  Weight: 76.2043 kg

DRUGS (2)
  1. LATISSE [Suspect]
     Indication: DARK CIRCLES UNDER EYES
     Dosage: 1 DOSE/APPLY TO LOWER LID EVERYNIGHT
     Dates: start: 20100313, end: 20100315
  2. LATISSE [Suspect]
     Indication: EYE SWELLING
     Dosage: 1 DOSE/APPLY TO LOWER LID EVERYNIGHT
     Dates: start: 20100313, end: 20100315

REACTIONS (2)
  - DARK CIRCLES UNDER EYES [None]
  - EYE SWELLING [None]
